FAERS Safety Report 18350984 (Version 1)
Quarter: 2020Q4

REPORT INFORMATION
  Report Type: Report from Study
  Country: CA (occurrence: CA)
  Receive Date: 20201006
  Receipt Date: 20201006
  Transmission Date: 20210114
  Serious: Yes (Hospitalization, Other)
  Sender: FDA-Public Use
  Company Number: CA-JNJFOC-20200831894

PATIENT
  Age: 40 Year
  Sex: Female
  Weight: 108 kg

DRUGS (1)
  1. REMICADE [Suspect]
     Active Substance: INFLIXIMAB
     Indication: CROHN^S DISEASE
     Route: 042
     Dates: start: 20170111

REACTIONS (3)
  - Abdominal hernia [Unknown]
  - Clostridium difficile infection [Recovered/Resolved]
  - Antibiotic therapy [Unknown]

NARRATIVE: CASE EVENT DATE: 2020
